FAERS Safety Report 7625298-8 (Version None)
Quarter: 2011Q3

REPORT INFORMATION
  Report Type: 
  Country: None (occurrence: None)
  Receive Date: 20110721
  Receipt Date: 20110718
  Transmission Date: 20111222
  Serious: Yes (Other)
  Sender: FDA-Public Use
  Company Number: US-PFIZER INC-2011154554

PATIENT
  Sex: Male
  Weight: 92.971 kg

DRUGS (9)
  1. PRISTIQ [Suspect]
     Indication: PAIN
  2. MS CONTIN [Concomitant]
     Indication: ARTHRALGIA
     Dosage: UNK
  3. LOPRESSOR [Concomitant]
     Indication: HYPERTENSION
     Dosage: UNK
  4. PRISTIQ [Suspect]
     Indication: DEPRESSION
     Dosage: 50 MG, 1X/DAY
     Route: 048
     Dates: start: 20101201
  5. MS CONTIN [Concomitant]
     Indication: PAIN
     Dosage: 40 MG, 3X/DAY
  6. MS CONTIN [Concomitant]
  7. LORAZEPAM [Concomitant]
     Dosage: UNK
  8. TOPROL-XL [Concomitant]
     Indication: HYPERTENSION
     Dosage: 100 MG, 2X/DAY
  9. MS CONTIN [Concomitant]

REACTIONS (8)
  - BLOOD PRESSURE INCREASED [None]
  - DISTURBANCE IN ATTENTION [None]
  - WEIGHT INCREASED [None]
  - FEELING ABNORMAL [None]
  - PARAESTHESIA [None]
  - SWELLING [None]
  - MEMORY IMPAIRMENT [None]
  - BRADYPHRENIA [None]
